FAERS Safety Report 11272188 (Version 2)
Quarter: 2015Q3

REPORT INFORMATION
  Report Type: Spontaneous
  Country: DE (occurrence: None)
  Receive Date: 20150713
  Receipt Date: 20150721
  Transmission Date: 20151125
  Serious: Yes (Hospitalization)
  Sender: FDA-Public Use
  Company Number: IPC201507-000437

PATIENT
  Age: 60 Year
  Sex: Female

DRUGS (9)
  1. PIPAMPERONE [Suspect]
     Active Substance: PIPAMPERONE
  2. CHLORPROTHIXENE (CHLORPROTHIXENE) [Suspect]
     Active Substance: CHLORPROTHIXENE
  3. LEVOTHYROXINE SODIUM (LEVOTHYROXINE SODIUM) [Concomitant]
  4. LORAZEPAM (LORAZEPAM) [Concomitant]
     Active Substance: LORAZEPAM
  5. HYDROCHLOROTHIAZIDE (HYDROCHLOROTHIAZIDE) (HYDROCHLOROTHIAZIDE) [Suspect]
     Active Substance: HYDROCHLOROTHIAZIDE
  6. VALSARTAN (VALSARTAN) [Suspect]
     Active Substance: VALSARTAN
  7. QUETIAPINE (QUETIAPINE) [Suspect]
     Active Substance: QUETIAPINE
  8. LITHIUM. [Suspect]
     Active Substance: LITHIUM
  9. GLIMEPIRIDE (GLIMEPIRIDE) [Concomitant]
     Active Substance: GLIMEPIRIDE

REACTIONS (4)
  - Toxicity to various agents [None]
  - Rhabdomyolysis [None]
  - Acute kidney injury [None]
  - Posterior reversible encephalopathy syndrome [None]
